FAERS Safety Report 9191136 (Version 1)
Quarter: 2013Q1

REPORT INFORMATION
  Report Type: Spontaneous
  Country: US (occurrence: None)
  Receive Date: 20120703
  Receipt Date: 20120703
  Transmission Date: 20140127
  Serious: No
  Sender: FDA-Public Use
  Company Number: PHEH2012US010441

PATIENT
  Age: 31 Year
  Sex: Female

DRUGS (3)
  1. GILENYA [Suspect]
  2. ORTHO-CYCLEN (ETHINYLESTRADIOL, NORGESTIMATE) TABLET [Concomitant]
  3. IBUPROFEN (IBUPROFEN) TABLET, 200 MG [Concomitant]

REACTIONS (1)
  - Hypoaesthesia [None]
